FAERS Safety Report 19747991 (Version 3)
Quarter: 2021Q4

REPORT INFORMATION
  Report Type: Report from Study
  Country: AT (occurrence: AT)
  Receive Date: 20210825
  Receipt Date: 20211020
  Transmission Date: 20220303
  Serious: Yes (Hospitalization, Other)
  Sender: FDA-Public Use
  Company Number: AT-SEATTLE GENETICS-2021SGN04357

PATIENT
  Age: 56 Year
  Sex: Female
  Weight: 68 kg

DRUGS (12)
  1. TUCATINIB [Suspect]
     Active Substance: TUCATINIB
     Indication: HER2 positive breast cancer
     Dosage: 150 MG, BID
     Route: 048
     Dates: start: 20210816, end: 20210818
  2. ADO-TRASTUZUMAB EMTANSINE [Suspect]
     Active Substance: ADO-TRASTUZUMAB EMTANSINE
     Indication: HER2 positive breast cancer
     Dosage: 3.6 MG/KG, Q3WEEKS
     Route: 042
     Dates: start: 20210816, end: 20210816
  3. EUTHYROX [Concomitant]
     Active Substance: LEVOTHYROXINE SODIUM
     Dosage: 25 MG, QD
     Dates: start: 202104
  4. PANTOPRAZOLE [Concomitant]
     Active Substance: PANTOPRAZOLE
     Dosage: 40 MG, QD
     Dates: start: 202101
  5. BISOPROLOL FUMARATE [Concomitant]
     Active Substance: BISOPROLOL FUMARATE
     Dosage: 1.25 MG, BID
     Dates: start: 202101
  6. ARISTOCOR [Concomitant]
     Dosage: 50 MG, BID
     Dates: start: 202101
  7. XGEVA [Concomitant]
     Active Substance: DENOSUMAB
     Dosage: UNK
     Dates: start: 202106
  8. METOCLOPRAMIDE HYDROCHLORIDE [Concomitant]
     Active Substance: METOCLOPRAMIDE HYDROCHLORIDE
     Dosage: AS NEEDED
     Dates: start: 2020
  9. ACETAMINOPHEN\CAFFEINE\PROPYPHENAZONE [Concomitant]
     Active Substance: ACETAMINOPHEN\CAFFEINE\PROPYPHENAZONE
     Dosage: UNK
     Dates: start: 2020
  10. ZOFRAN [Concomitant]
     Active Substance: ONDANSETRON HYDROCHLORIDE
     Dosage: UNK
     Dates: start: 2020
  11. NEOSTIGMINE METHYLSULFATE [Concomitant]
     Active Substance: NEOSTIGMINE METHYLSULFATE
     Dosage: EVERY TWO DAYS
     Dates: start: 202106
  12. KIJIMEA IBS [Concomitant]
     Dosage: UNK, BID
     Dates: start: 202108

REACTIONS (3)
  - Subileus [Recovered/Resolved]
  - Hypokalaemia [Recovered/Resolved]
  - Acute kidney injury [Recovered/Resolved]

NARRATIVE: CASE EVENT DATE: 20210820
